FAERS Safety Report 6237811-6 (Version None)
Quarter: 2009Q2

REPORT INFORMATION
  Report Type: 
  Country: None (occurrence: None)
  Receive Date: 20090618
  Receipt Date: 20090604
  Transmission Date: 20091009
  Serious: Yes (Hospitalization)
  Sender: FDA-Public Use
  Company Number: MPS1-1000231

PATIENT
  Age: 19 Year
  Sex: Male
  Weight: 66 kg

DRUGS (1)
  1. ALDURAZYME [Suspect]
     Indication: MUCOPOLYSACCHARIDOSIS
     Dosage: 0.58 MG/KG, 1XW, INTRAVENOUS
     Route: 042
     Dates: start: 20031028

REACTIONS (13)
  - BACK PAIN [None]
  - BACTERIAL INFECTION [None]
  - BLOOD PRESSURE FLUCTUATION [None]
  - DIZZINESS POSTURAL [None]
  - FATIGUE [None]
  - HEADACHE [None]
  - HYPOTENSION [None]
  - INFUSION RELATED REACTION [None]
  - PALLOR [None]
  - PNEUMONIA VIRAL [None]
  - SENSORY DISTURBANCE [None]
  - VISION BLURRED [None]
  - WEIGHT INCREASED [None]
